FAERS Safety Report 4356871-0 (Version None)
Quarter: 2004Q2

REPORT INFORMATION
  Report Type: 
  Country: None (occurrence: None)
  Receive Date: 20040512
  Receipt Date: 20040415
  Transmission Date: 20050107
  Serious: Yes (Other)
  Sender: FDA-Public Use
  Company Number: JP-MERCK-0404USA01879

PATIENT
  Age: 70 Year

DRUGS (9)
  1. AKINETON [Suspect]
     Route: 048
  2. BROMOCRIPTINE [Concomitant]
     Route: 048
  3. DEPAS [Concomitant]
     Route: 048
  4. PEPCID [Suspect]
     Route: 048
  5. ROHYPNOL [Concomitant]
     Route: 048
  6. CRAVIT [Concomitant]
     Route: 065
  7. PANTOSIN [Concomitant]
     Route: 048
  8. NEULEPTIL [Suspect]
     Route: 048
  9. ALDACTONE [Concomitant]
     Route: 048

REACTIONS (1)
  - HYPOGLYCAEMIA [None]
